FAERS Safety Report 17970966 (Version 2)
Quarter: 2020Q3

REPORT INFORMATION
  Report Type: Report from Study
  Country: BE (occurrence: BE)
  Receive Date: 20200702
  Receipt Date: 20200716
  Transmission Date: 20201103
  Serious: Yes (Hospitalization, Disabling)
  Sender: FDA-Public Use
  Company Number: BE-SA-2020SA168863

PATIENT

DRUGS (2)
  1. DUPILUMAB [Suspect]
     Active Substance: DUPILUMAB
     Indication: DERMATITIS ATOPIC
     Dosage: UNK
     Route: 065
     Dates: start: 201903
  2. DUPILUMAB [Suspect]
     Active Substance: DUPILUMAB
     Dosage: 300 MG, QOW
     Route: 058
     Dates: start: 20190402, end: 202006

REACTIONS (5)
  - Oedema peripheral [Unknown]
  - Pulmonary sarcoidosis [Unknown]
  - Dyspnoea [Unknown]
  - General physical health deterioration [Unknown]
  - Synovial cyst [Unknown]

NARRATIVE: CASE EVENT DATE: 20200501
